FAERS Safety Report 14250104 (Version 1)
Quarter: 2017Q4

REPORT INFORMATION
  Report Type: Spontaneous
  Country: US (occurrence: US)
  Receive Date: 20171205
  Receipt Date: 20171205
  Transmission Date: 20180321
  Serious: Yes (Hospitalization, Other)
  Sender: FDA-Public Use
  Company Number: US-VISTAPHARM, INC.-VER201711-001178

PATIENT
  Age: 54 Year
  Sex: Male

DRUGS (3)
  1. PHENYTOIN. [Suspect]
     Active Substance: PHENYTOIN
     Dosage: LOADING DOSE 1000 MG ONCE AT RATE OF 50 MG/MIN
     Route: 042
  2. PHENYTOIN. [Suspect]
     Active Substance: PHENYTOIN
     Indication: SEIZURE
  3. PHENYTOIN. [Suspect]
     Active Substance: PHENYTOIN

REACTIONS (8)
  - Purple glove syndrome [Recovering/Resolving]
  - Drug level below therapeutic [Unknown]
  - Ventricular fibrillation [Unknown]
  - Pulseless electrical activity [Unknown]
  - Cardiac arrest [Unknown]
  - Haematoma [Unknown]
  - Loss of consciousness [Recovered/Resolved]
  - Injection site extravasation [Unknown]
